FAERS Safety Report 19172589 (Version 1)
Quarter: 2021Q2

REPORT INFORMATION
  Report Type: Spontaneous
  Country: US (occurrence: US)
  Receive Date: 20210423
  Receipt Date: 20210423
  Transmission Date: 20210717
  Serious: No
  Sender: FDA-Public Use
  Company Number: US-SA-2021SA135276

PATIENT
  Age: 31 Year
  Sex: Female

DRUGS (2)
  1. AZELASTINE [AZELASTINE HYDROCHLORIDE] [Concomitant]
  2. DUPIXENT [Suspect]
     Active Substance: DUPILUMAB
     Indication: NASAL POLYPS
     Dosage: UNK
     Route: 058

REACTIONS (2)
  - Throat irritation [Recovered/Resolved]
  - Product use issue [Unknown]
